FAERS Safety Report 6080364-6 (Version None)
Quarter: 2009Q1

REPORT INFORMATION
  Report Type: 
  Country: None (occurrence: None)
  Receive Date: 20090217
  Receipt Date: 20090203
  Transmission Date: 20090719
  Serious: Yes (Hospitalization)
  Sender: FDA-Public Use
  Company Number: JP-PFIZER INC-2009168672

PATIENT

DRUGS (2)
  1. MIGLITOL [Suspect]
     Route: 048
  2. INSULIN [Concomitant]
     Route: 058

REACTIONS (1)
  - DERMATITIS EXFOLIATIVE [None]
